FAERS Safety Report 9135417 (Version 4)
Quarter: 2013Q2

REPORT INFORMATION
  Report Type: Spontaneous
  Country: US (occurrence: US)
  Receive Date: 20130304
  Receipt Date: 20130620
  Transmission Date: 20140414
  Serious: Yes (Hospitalization)
  Sender: FDA-Public Use
  Company Number: US-PFIZER INC-2013074049

PATIENT
  Age: 61 Year
  Sex: Female
  Weight: 49.89 kg

DRUGS (3)
  1. LYRICA [Suspect]
     Indication: PAIN
     Dosage: 200 MG, 3X/DAY
     Route: 048
     Dates: start: 2012, end: 201302
  2. MORPHINE [Concomitant]
     Indication: PAIN
     Dosage: UNK
  3. COZAAR [Concomitant]
     Dosage: 50 MG, 1X/DAY

REACTIONS (11)
  - Fall [Unknown]
  - Lower limb fracture [Unknown]
  - Tibia fracture [Unknown]
  - Ankle fracture [Unknown]
  - Withdrawal syndrome [Unknown]
  - Tremor [Recovering/Resolving]
  - Nasopharyngitis [Recovering/Resolving]
  - Feeling cold [Recovering/Resolving]
  - Nausea [Recovering/Resolving]
  - Gait disturbance [Recovering/Resolving]
  - Chills [Recovering/Resolving]
